FAERS Safety Report 6531618-8 (Version None)
Quarter: 2010Q1

REPORT INFORMATION
  Report Type: 
  Country: None (occurrence: None)
  Receive Date: 20100108
  Receipt Date: 20091228
  Transmission Date: 20100710
  Serious: Yes (Other)
  Sender: FDA-Public Use
  Company Number: FR-PFIZER INC-2009314558

PATIENT
  Age: 13 Year
  Sex: Female

DRUGS (1)
  1. SUTENT [Suspect]
     Dosage: UNK
     Route: 048
     Dates: start: 20091002

REACTIONS (4)
  - ERYTHEMA [None]
  - PRURITUS [None]
  - THROMBOCYTOPENIA [None]
  - VULVITIS [None]
